FAERS Safety Report 5225728-5 (Version None)
Quarter: 2007Q1

REPORT INFORMATION
  Report Type: 
  Country: None (occurrence: None)
  Receive Date: 20070104
  Receipt Date: 20070104
  Transmission Date: 20070707
  Serious: Yes (Other)
  Sender: FDA-Public Use
  Company Number: None

PATIENT
  Age: 55 Year
  Sex: Male
  Weight: 73.1652 kg

DRUGS (2)
  1. ERBITUX [Suspect]
     Indication: NEOPLASM RECURRENCE
     Dosage: 250MG/M2  WEEKLY IV
     Route: 042
     Dates: start: 20060814, end: 20061113
  2. ERBITUX [Suspect]
     Indication: TONGUE NEOPLASM MALIGNANT STAGE UNSPECIFIED
     Dosage: 250MG/M2  WEEKLY IV
     Route: 042
     Dates: start: 20060814, end: 20061113

REACTIONS (4)
  - DRY SKIN [None]
  - EYE IRRITATION [None]
  - LACRIMATION INCREASED [None]
  - MACULAR OEDEMA [None]
